FAERS Safety Report 5184068-3 (Version None)
Quarter: 2006Q4

REPORT INFORMATION
  Report Type: 
  Country: None (occurrence: None)
  Receive Date: 20061220
  Receipt Date: 20060309
  Transmission Date: 20070319
  Serious: No
  Sender: FDA-Public Use
  Company Number: US-GLAXOSMITHKLINE-A0596855A

PATIENT
  Age: 28 Year
  Sex: Male

DRUGS (1)
  1. EQUATE NTS 14MG [Suspect]

REACTIONS (7)
  - APPLICATION SITE DISCOMFORT [None]
  - APPLICATION SITE DRYNESS [None]
  - APPLICATION SITE PRURITUS [None]
  - APPLICATION SITE SWELLING [None]
  - APPLICATION SITE URTICARIA [None]
  - PRURITUS GENERALISED [None]
  - RASH GENERALISED [None]
